FAERS Safety Report 17454449 (Version 3)
Quarter: 2021Q2

REPORT INFORMATION
  Report Type: Report from Study
  Country: JP (occurrence: JP)
  Receive Date: 20200225
  Receipt Date: 20210421
  Transmission Date: 20210716
  Serious: Yes (Hospitalization, Other)
  Sender: FDA-Public Use
  Company Number: JP-ALEXION PHARMACEUTICALS INC.-A202002130

PATIENT
  Age: 40 Year
  Sex: Female
  Weight: 63 kg

DRUGS (7)
  1. SOLIRIS [Suspect]
     Active Substance: ECULIZUMAB
     Dosage: 1200 MG, Q2W
     Route: 042
     Dates: start: 20191223
  2. SOLIRIS [Suspect]
     Active Substance: ECULIZUMAB
     Indication: MYASTHENIA GRAVIS
     Dosage: 900 MG, QW
     Route: 042
     Dates: start: 20191118, end: 20191209
  3. PREDONINE [Concomitant]
     Active Substance: PREDNISOLONE
     Indication: MYASTHENIA GRAVIS
     Dosage: 15 MG, QD
     Route: 048
     Dates: start: 20190412
  4. SOLU?MEDROL [Concomitant]
     Active Substance: METHYLPREDNISOLONE SODIUM SUCCINATE
     Indication: MYASTHENIA GRAVIS
     Dosage: 1000 MG, TIW
     Route: 065
     Dates: start: 20190820, end: 20190829
  5. SOLU?MEDROL [Concomitant]
     Active Substance: METHYLPREDNISOLONE SODIUM SUCCINATE
     Indication: MYASTHENIA GRAVIS
     Dosage: 1000 MG, TIW
     Route: 065
     Dates: start: 20200225, end: 20200227
  6. NEORAL [Concomitant]
     Active Substance: CYCLOSPORINE
     Indication: MYASTHENIA GRAVIS
     Dosage: 75 MG, BID
     Route: 048
     Dates: start: 20181029
  7. MYTELASE [Concomitant]
     Active Substance: AMBENONIUM CHLORIDE
     Indication: MYASTHENIA GRAVIS
     Dosage: 10 MG, QD
     Route: 048
     Dates: start: 20131019

REACTIONS (1)
  - Myasthenia gravis [Recovering/Resolving]

NARRATIVE: CASE EVENT DATE: 20200201
